FAERS Safety Report 23499515 (Version 2)
Quarter: 2024Q1

REPORT INFORMATION
  Report Type: Report from Study
  Country: GR (occurrence: GR)
  Receive Date: 20240208
  Receipt Date: 20240215
  Transmission Date: 20240410
  Serious: Yes (Hospitalization, Other)
  Sender: FDA-Public Use
  Company Number: GR-BAXTER-2024BAX012422

PATIENT
  Age: 69 Year
  Sex: Female
  Weight: 44 kg

DRUGS (15)
  1. DOXORUBICIN [Suspect]
     Active Substance: DOXORUBICIN
     Indication: Diffuse large B-cell lymphoma
     Dosage: 35 MG, EVERY 3 WEEKS, ONGOING
     Route: 042
     Dates: start: 20231002
  2. CYCLOPHOSPHAMIDE [Suspect]
     Active Substance: CYCLOPHOSPHAMIDE
     Indication: Diffuse large B-cell lymphoma
     Dosage: 560 MG, EVERY 3 WEEKS, ONGOING
     Route: 042
     Dates: start: 20231002
  3. VINCRISTINE [Suspect]
     Active Substance: VINCRISTINE
     Indication: Diffuse large B-cell lymphoma
     Dosage: 1 MG, EVERY 3 WEEKS, ONGOING
     Route: 042
     Dates: start: 20231002
  4. EPCORITAMAB [Suspect]
     Active Substance: EPCORITAMAB
     Indication: Diffuse large B-cell lymphoma
     Dosage: 48 MG C1 (STEP-UP), CYCLES 2-4 (21-DAY CYCLE, WEEKLY DOSE), C5-8 (21-DAY CYCLE, EVERY 3 WEEKS) PER P
     Route: 058
     Dates: start: 20231003
  5. RITUXIMAB [Suspect]
     Active Substance: RITUXIMAB
     Indication: Diffuse large B-cell lymphoma
     Dosage: 525 MG, EVERY 3 WEEKS, ONGOING
     Route: 042
     Dates: start: 20231002
  6. PREDNISONE [Suspect]
     Active Substance: PREDNISONE
     Indication: Diffuse large B-cell lymphoma
     Dosage: 100 MG C1-C6; DAY 1-5, EVERY 1 DAYS, ONGOING
     Route: 048
     Dates: start: 20231002
  7. ALLOPURINOL [Concomitant]
     Active Substance: ALLOPURINOL
     Indication: Prophylaxis
     Dosage: 300 MG, EVERY AFTERNOON
     Route: 065
     Dates: start: 20231002
  8. CALCIUM FOLINATE NK [Concomitant]
     Indication: Vitamin supplementation
     Dosage: 15 MG, 2/ WEEKS
     Route: 065
     Dates: start: 20231005
  9. FILGRASTIM [Concomitant]
     Active Substance: FILGRASTIM
     Indication: Prophylaxis
     Dosage: 30 IU, OCCASIONAL
     Route: 065
     Dates: start: 20231010
  10. LACTULOSE [Concomitant]
     Active Substance: LACTULOSE
     Indication: Constipation prophylaxis
     Dosage: 10 ML, OCCASIONAL
     Route: 065
     Dates: start: 20231002
  11. OMEPRAZOLE [Concomitant]
     Active Substance: OMEPRAZOLE
     Indication: Gastrointestinal disorder prophylaxis
     Dosage: 20 MG, IN THE MORNING, EVERY 1 DAYS
     Route: 065
     Dates: start: 20231002
  12. ONDANSETRON [Concomitant]
     Active Substance: ONDANSETRON
     Indication: Prophylaxis of nausea and vomiting
     Dosage: 8 MG, OCCASIONAL
     Route: 065
     Dates: start: 20231002
  13. Posaconazole eg [Concomitant]
     Indication: Antifungal prophylaxis
     Dosage: 7.5 ML, EVERY AFTERNOON
     Route: 065
     Dates: start: 20231005
  14. TRIMETHOPRIM NTN [Concomitant]
     Indication: Antifungal prophylaxis
     Dosage: 960 MG, 3/WEEKS
     Route: 065
     Dates: start: 20231005
  15. VALACYCLOVIR [Concomitant]
     Active Substance: VALACYCLOVIR HYDROCHLORIDE
     Indication: Antiviral prophylaxis
     Dosage: 500 MG, EVERY AFTERNOON
     Route: 065
     Dates: start: 20231005

REACTIONS (2)
  - Cytomegalovirus infection reactivation [Unknown]
  - Neutropenia [Unknown]

NARRATIVE: CASE EVENT DATE: 20231010
